FAERS Safety Report 5761574-1 (Version None)
Quarter: 2008Q2

REPORT INFORMATION
  Report Type: 
  Country: None (occurrence: None)
  Receive Date: 20080606
  Receipt Date: 20080527
  Transmission Date: 20081010
  Serious: Yes (Other)
  Sender: FDA-Public Use
  Company Number: US-PFIZER INC-001-0073-990192

PATIENT
  Age: 30 Year
  Sex: Female

DRUGS (3)
  1. DILANTIN [Suspect]
     Indication: EPILEPSY
     Dosage: DAILY DOSE:300MG
  2. DEPAKOTE [Suspect]
     Indication: EPILEPSY
     Dosage: DAILY DOSE:2000MG
  3. FOLIC ACID [Concomitant]

REACTIONS (1)
  - ECTOPIC PREGNANCY [None]
